FAERS Safety Report 9286251 (Version 1)
Quarter: 2013Q2

REPORT INFORMATION
  Report Type: Spontaneous
  Country: JP (occurrence: JP)
  Receive Date: 20130513
  Receipt Date: 20130513
  Transmission Date: 20140414
  Serious: Yes (Other)
  Sender: FDA-Public Use
  Company Number: JP-GLAXOSMITHKLINE-B0890808A

PATIENT
  Sex: 0

DRUGS (1)
  1. DERMOVATE [Suspect]
     Indication: ECZEMA
     Route: 061

REACTIONS (1)
  - Haemorrhage subcutaneous [Unknown]
